FAERS Safety Report 5907745-2 (Version None)
Quarter: 2008Q4

REPORT INFORMATION
  Report Type: 
  Country: None (occurrence: None)
  Receive Date: 20081003
  Receipt Date: 20080922
  Transmission Date: 20090506
  Serious: Yes (Other)
  Sender: FDA-Public Use
  Company Number: NL-ROCHE-588770

PATIENT
  Age: 17 Month
  Sex: Female

DRUGS (8)
  1. CLONAZEPAM [Suspect]
     Indication: OPSOCLONUS MYOCLONUS
     Route: 065
  2. RITUXIMAB [Suspect]
     Indication: OPSOCLONUS MYOCLONUS
     Dosage: 4 DOSES FOR ONE MONTH
     Route: 042
  3. RITUXIMAB [Suspect]
     Dosage: EIGHT DOSES FOR THREE MONTHS
     Route: 042
  4. IMMUNE GLOBULIN IV NOS [Suspect]
     Indication: OPSOCLONUS MYOCLONUS
     Dosage: FOR THREE DAYS; DRUG: IMMUNOGLOBULINS
     Route: 042
  5. IMMUNE GLOBULIN IV NOS [Suspect]
     Dosage: THREE DOSES
     Route: 042
  6. IMMUNE GLOBULIN IV NOS [Suspect]
     Dosage: SIX DOSES
     Route: 042
  7. IMMUNE GLOBULIN IV NOS [Suspect]
     Dosage: FOR FOUR MONTHS
     Route: 042
  8. METHYLPREDNISOLONE [Suspect]
     Indication: OPSOCLONUS MYOCLONUS
     Dosage: ONE DOSE
     Route: 065

REACTIONS (3)
  - BODY TEMPERATURE INCREASED [None]
  - OPSOCLONUS MYOCLONUS [None]
  - VOMITING [None]
